FAERS Safety Report 5526551-4 (Version None)
Quarter: 2007Q4

REPORT INFORMATION
  Report Type: 
  Country: None (occurrence: None)
  Receive Date: 20071127
  Receipt Date: 20071114
  Transmission Date: 20080405
  Serious: Yes (Hospitalization, Other)
  Sender: FDA-Public Use
  Company Number: US-ELI_LILLY_AND_COMPANY-US200709003034

PATIENT
  Age: 59 Year
  Sex: Male

DRUGS (5)
  1. GEMZAR [Suspect]
     Indication: PANCREATIC CARCINOMA
     Dates: start: 20050101
  2. GEMZAR [Suspect]
     Dates: start: 20070401
  3. FLUOROURACIL [Concomitant]
     Indication: PANCREATIC CARCINOMA
     Dates: start: 20050101
  4. TAXOTERE [Concomitant]
     Indication: PANCREATIC CARCINOMA
     Dates: start: 20070101, end: 20070101
  5. PANCREATIC ENZYMES [Concomitant]
     Dates: start: 20050101, end: 20050101

REACTIONS (9)
  - CATHETER SITE INFECTION [None]
  - DISEASE PROGRESSION [None]
  - DRUG HYPERSENSITIVITY [None]
  - HYPERSENSITIVITY [None]
  - MALAISE [None]
  - MALIGNANT NEOPLASM PROGRESSION [None]
  - NAUSEA [None]
  - VOMITING [None]
  - WEIGHT DECREASED [None]
